FAERS Safety Report 18599915 (Version 1)
Quarter: 2020Q4

REPORT INFORMATION
  Report Type: Spontaneous
  Country: US (occurrence: US)
  Receive Date: 20201209
  Receipt Date: 20201209
  Transmission Date: 20210114
  Serious: Yes (Hospitalization)
  Sender: FDA-Public Use
  Company Number: None

PATIENT
  Age: 66 Year
  Sex: Male

DRUGS (7)
  1. TUMS [Concomitant]
     Active Substance: CALCIUM CARBONATE
  2. SPRYCEL [Concomitant]
     Active Substance: DASATINIB
  3. MULTIV [Concomitant]
  4. SPRYCEL [Suspect]
     Active Substance: DASATINIB
     Indication: LEUKAEMIA
     Route: 048
     Dates: start: 20150914
  5. FERROUS SULF [Concomitant]
     Active Substance: FERROUS SULFATE
  6. IRON [Concomitant]
     Active Substance: IRON
  7. AMLODIPINE [Concomitant]
     Active Substance: AMLODIPINE BESYLATE

REACTIONS (1)
  - Cardiac disorder [None]

NARRATIVE: CASE EVENT DATE: 20201020
